FAERS Safety Report 6819761-7 (Version None)
Quarter: 2010Q3

REPORT INFORMATION
  Report Type: 
  Country: None (occurrence: None)
  Receive Date: 20100707
  Receipt Date: 20100528
  Transmission Date: 20110219
  Serious: Yes (Hospitalization, Other)
  Sender: FDA-Public Use
  Company Number: PHFR2010GB00844

PATIENT
  Sex: Male

DRUGS (31)
  1. CLOZARIL [Suspect]
     Indication: SCHIZOPHRENIA
     Dosage: UNK
     Dates: start: 19920116
  2. CLOZARIL [Suspect]
     Dosage: 300MG DAILY
  3. CLOZARIL [Suspect]
     Dosage: 350MG DAILY
  4. CLOZARIL [Suspect]
     Dosage: 250MG DAILY
  5. CLOZARIL [Suspect]
     Dosage: 400MG DAILY
  6. CARBAMAZEPINE [Suspect]
     Dosage: 1200MG DAILY
  7. AMISULPRIDE [Suspect]
  8. ZUCLOPENTHIXOL [Concomitant]
     Dosage: 400 MG, QW
     Route: 030
  9. ZUCLOPENTHIXOL [Concomitant]
     Dosage: 600 MG, QW
  10. HALOPERIDOL [Concomitant]
     Dosage: 120MG DAILY
  11. HALOPERIDOL [Concomitant]
     Dosage: 50 MG, TID
  12. DIAZEPAM [Concomitant]
     Dosage: 80MG DAILY
  13. DEPIXOL [Concomitant]
     Dosage: 40 MG, QW
     Route: 030
  14. DEPIXOL [Concomitant]
     Dosage: 50 MG, QW
     Route: 030
  15. PROCYCLIDINE HYDROCHLORIDE 2MG TAB [Concomitant]
     Dosage: 5MG
  16. PROCYCLIDINE HYDROCHLORIDE 2MG TAB [Concomitant]
     Dosage: 10MG
  17. TRIFLUOPERAZINE [Concomitant]
     Dosage: 6MG
  18. TRIFLUOPERAZINE [Concomitant]
     Dosage: 10MG
  19. TRIFLUOPERAZINE [Concomitant]
     Dosage: 15MG
  20. CLOPIXOL DEPOT [Concomitant]
  21. STELAZINE [Concomitant]
  22. ARIPIPRAZOLE [Concomitant]
     Dosage: 10MG
  23. ARIPIPRAZOLE [Concomitant]
     Dosage: 15MG
  24. ARIPIPRAZOLE [Concomitant]
     Dosage: 30MG
  25. ARIPIPRAZOLE [Concomitant]
     Dosage: 15MG
  26. OMEPRAZOLE [Concomitant]
     Dosage: 20MG
  27. OLANZAPINE [Concomitant]
     Dosage: 20MG
  28. RISPERIDONE [Concomitant]
  29. QUETIAPINE [Concomitant]
     Dosage: 600MG
  30. PIPOTIAZINE [Concomitant]
  31. ACETAMINOPHEN [Concomitant]
     Dosage: UNK
     Dates: start: 19890501

REACTIONS (37)
  - ABNORMAL BEHAVIOUR [None]
  - AGGRESSION [None]
  - ANTISOCIAL BEHAVIOUR [None]
  - ANXIETY [None]
  - CHOLINERGIC SYNDROME [None]
  - COGNITIVE DISORDER [None]
  - DELUSION [None]
  - DEPRESSION [None]
  - ECHOLALIA [None]
  - HALLUCINATION [None]
  - HALLUCINATION, AUDITORY [None]
  - HYPERLIPIDAEMIA [None]
  - INAPPROPRIATE AFFECT [None]
  - LACERATION [None]
  - MENTAL IMPAIRMENT [None]
  - MULTIPLE DRUG OVERDOSE [None]
  - NEUTROPENIA [None]
  - OBSESSIVE THOUGHTS [None]
  - OVERWEIGHT [None]
  - POVERTY OF SPEECH [None]
  - PSYCHIATRIC SYMPTOM [None]
  - PSYCHOTIC DISORDER [None]
  - PYREXIA [None]
  - RASH [None]
  - RESTLESSNESS [None]
  - SALIVARY GLAND CALCULUS [None]
  - SALIVARY HYPERSECRETION [None]
  - SCHIZOPHRENIA [None]
  - SEDATION [None]
  - SENSORY DISTURBANCE [None]
  - STARING [None]
  - STRESS [None]
  - SUICIDAL IDEATION [None]
  - THEFT [None]
  - THOUGHT BLOCKING [None]
  - TIC [None]
  - TREATMENT NONCOMPLIANCE [None]
